FAERS Safety Report 14169105 (Version 2)
Quarter: 2017Q4

REPORT INFORMATION
  Report Type: Spontaneous
  Country: US (occurrence: US)
  Receive Date: 20171107
  Receipt Date: 20171208
  Transmission Date: 20180321
  Serious: Yes (Death, Hospitalization)
  Sender: FDA-Public Use
  Company Number: US-ACTELION-A-NJ2017-161602

PATIENT
  Age: 84 Year
  Sex: Female

DRUGS (4)
  1. OPSUMIT [Suspect]
     Active Substance: MACITENTAN
     Indication: PULMONARY ARTERIAL HYPERTENSION
     Dosage: 10 MG, QD
     Route: 048
     Dates: start: 20160514, end: 20171026
  2. UPTRAVI [Suspect]
     Active Substance: SELEXIPAG
     Indication: PULMONARY ARTERIAL HYPERTENSION
     Route: 048
  3. OXYGEN. [Concomitant]
     Active Substance: OXYGEN
  4. ADEMPAS [Concomitant]
     Active Substance: RIOCIGUAT

REACTIONS (19)
  - Dyspnoea [Fatal]
  - Cardiac failure congestive [Unknown]
  - Mental status changes [Unknown]
  - Aortic stenosis [Unknown]
  - Oxygen saturation decreased [Fatal]
  - Right ventricular systolic pressure [Unknown]
  - Sleep apnoea syndrome [Unknown]
  - Acute respiratory failure [Fatal]
  - Pulmonary arterial hypertension [Unknown]
  - Oedema peripheral [Unknown]
  - Cough [Recovered/Resolved with Sequelae]
  - Somnolence [Unknown]
  - Urinary tract infection [Unknown]
  - Pneumonia [Recovered/Resolved with Sequelae]
  - Right ventricular failure [Unknown]
  - Pleural effusion [Unknown]
  - Tachycardia [Unknown]
  - Aortic valve stenosis [Unknown]
  - Disorientation [Unknown]

NARRATIVE: CASE EVENT DATE: 20170302
